FAERS Safety Report 19685425 (Version 1)
Quarter: 2021Q3

REPORT INFORMATION
  Report Type: Spontaneous
  Country: US (occurrence: US)
  Receive Date: 20210811
  Receipt Date: 20210811
  Transmission Date: 20211014
  Serious: Yes (Hospitalization)
  Sender: FDA-Public Use
  Company Number: None

PATIENT
  Age: 84 Year
  Sex: Male

DRUGS (14)
  1. LEUKERAN [Suspect]
     Active Substance: CHLORAMBUCIL
     Indication: CHRONIC LYMPHOCYTIC LEUKAEMIA
     Dosage: ?          OTHER FREQUENCY:ON DAYS 1 AND 15;?
     Route: 048
     Dates: start: 20210729
  2. FUROSEMIDE 40MG TABLET [Concomitant]
     Active Substance: FUROSEMIDE SODIUM
     Dates: start: 20200211
  3. MULTIVITAMIN [Concomitant]
     Active Substance: VITAMINS
  4. POTASSIUM CHLORIDE 20 MEQ ER TABLET [Concomitant]
     Dates: start: 20200108
  5. ASPIRIN 81MG TABLET [Concomitant]
  6. ALFUZOSIN ER 10MG TABLETS [Concomitant]
     Dates: start: 20200307
  7. AMLODIPINE BESYLATE 10MG [Concomitant]
     Active Substance: AMLODIPINE BESYLATE
     Dates: start: 20191016
  8. ATORVASTATIN 40MG TABLET [Concomitant]
     Active Substance: ATORVASTATIN
     Dates: start: 20191204
  9. LISINOPRIL 10MG TABLET [Concomitant]
     Dates: start: 20210625
  10. METOPROLOL TARTRATE 50MG [Concomitant]
     Active Substance: METOPROLOL TARTRATE
     Dates: start: 20191204
  11. TRAZODONE [Concomitant]
     Active Substance: TRAZODONE HYDROCHLORIDE
     Dates: start: 20191226
  12. FERROUS SULFATE 325MG TABLET [Concomitant]
     Active Substance: FERROUS SULFATE
     Dates: start: 20200211
  13. LEVOTHYROXINE 0.05MG TABLET [Concomitant]
     Dates: start: 20200603
  14. PANTOPRAZOLE 40MG TABLET [Concomitant]
     Dates: start: 20200211

REACTIONS (2)
  - Gastrointestinal haemorrhage [None]
  - Post procedural haemorrhage [None]

NARRATIVE: CASE EVENT DATE: 20210802
